FAERS Safety Report 10459316 (Version 2)
Quarter: 2014Q4

REPORT INFORMATION
  Report Type: Spontaneous
  Country: DE (occurrence: DE)
  Receive Date: 20140917
  Receipt Date: 20141003
  Transmission Date: 20150528
  Serious: Yes (Other)
  Sender: FDA-Public Use
  Company Number: DE-PFIZER INC-2014255335

PATIENT
  Age: 60 Year
  Sex: Male

DRUGS (1)
  1. CORDAREX [Suspect]
     Active Substance: AMIODARONE
     Indication: VENTRICULAR ARRHYTHMIA
     Dosage: ALTERNATING BETWEEN 200 AND 400 MG PER DAY
     Route: 065

REACTIONS (1)
  - Lung consolidation [Recovering/Resolving]
